FAERS Safety Report 5679679-2 (Version None)
Quarter: 2008Q1

REPORT INFORMATION
  Report Type: 
  Country: None (occurrence: None)
  Receive Date: 20080320
  Receipt Date: 20080306
  Transmission Date: 20080703
  Serious: Yes (Hospitalization, Other)
  Sender: FDA-Public Use
  Company Number: RENA-1000056

PATIENT

DRUGS (1)
  1. RENAGEL [Suspect]
     Indication: HYPERPHOSPHATAEMIA
     Dates: start: 20080101, end: 20080101

REACTIONS (7)
  - DISEASE COMPLICATION [None]
  - DRUG HYPERSENSITIVITY [None]
  - PRURITUS [None]
  - RASH [None]
  - RASH PAPULAR [None]
  - RENAL DISORDER [None]
  - SKIN EXFOLIATION [None]
